FAERS Safety Report 6189131-6 (Version None)
Quarter: 2009Q2

REPORT INFORMATION
  Report Type: 
  Country: None (occurrence: None)
  Receive Date: 20090513
  Receipt Date: 20090208
  Transmission Date: 20091009
  Serious: No
  Sender: FDA-Public Use
  Company Number: A0768258A

PATIENT

DRUGS (1)
  1. TREXIMET [Suspect]
     Indication: MIGRAINE

REACTIONS (1)
  - UNEVALUABLE EVENT [None]
